FAERS Safety Report 14498980 (Version 1)
Quarter: 2018Q1

REPORT INFORMATION
  Report Type: Spontaneous
  Country: US (occurrence: US)
  Receive Date: 20180207
  Receipt Date: 20180207
  Transmission Date: 20180509
  Serious: Yes (Hospitalization)
  Sender: FDA-Public Use
  Company Number: US-DENDREON PHARMACEUTICALS LLC-2017DEN000044

PATIENT

DRUGS (2)
  1. PROVENGE [Suspect]
     Active Substance: SIPULEUCEL-T
     Indication: PROSTATE CANCER
     Dosage: 250 ML, (1 IN 1D)
     Route: 042
     Dates: start: 20170922, end: 20170922
  2. PROVENGE [Suspect]
     Active Substance: SIPULEUCEL-T
     Dosage: 250 ML, (1 IN ID)
     Route: 042
     Dates: start: 20171006, end: 20171006

REACTIONS (6)
  - Ill-defined disorder [Unknown]
  - Dehydration [Unknown]
  - Urinary tract infection [Unknown]
  - Blood count abnormal [Unknown]
  - Diarrhoea [Unknown]
  - Toxic shock syndrome [Recovered/Resolved]

NARRATIVE: CASE EVENT DATE: 20170925
